FAERS Safety Report 5858922-0 (Version None)
Quarter: 2008Q3

REPORT INFORMATION
  Report Type: 
  Country: None (occurrence: None)
  Receive Date: 20080825
  Receipt Date: 20080812
  Transmission Date: 20090109
  Serious: Yes (Hospitalization)
  Sender: FDA-Public Use
  Company Number: 2008AL006238

PATIENT
  Age: 10 Year
  Sex: Male
  Weight: 22.6799 kg

DRUGS (1)
  1. DIGOXIN [Suspect]
     Indication: CARDIAC DISORDER
     Dosage: DAILY, PO
     Route: 048

REACTIONS (3)
  - HAEMORRHAGIC CYST [None]
  - INFECTION [None]
  - MALAISE [None]
